FAERS Safety Report 7678298-6 (Version None)
Quarter: 2011Q3

REPORT INFORMATION
  Report Type: 
  Country: None (occurrence: None)
  Receive Date: 20110811
  Receipt Date: 20110809
  Transmission Date: 20111222
  Serious: Yes (Hospitalization)
  Sender: FDA-Public Use
  Company Number: PHHY2011FR39259

PATIENT
  Sex: Female

DRUGS (4)
  1. TANAKAN [Concomitant]
     Dosage: UNK UKN, UNK
  2. URBANYL [Concomitant]
     Dosage: UNK UKN, UNK
  3. TEGRETOL [Suspect]
     Indication: EPILEPSY
     Dosage: 200 MG TWICE DAILY
  4. ALEPSAL [Suspect]
     Indication: EPILEPSY
     Dosage: 1 DF, TID
     Route: 048

REACTIONS (11)
  - HEMIPARESIS [None]
  - DYSSTASIA [None]
  - HEMIPLEGIA [None]
  - CEREBRAL ATROPHY [None]
  - CEREBROVASCULAR ACCIDENT [None]
  - FALL [None]
  - PSYCHOMOTOR RETARDATION [None]
  - SOMNOLENCE [None]
  - DYSARTHRIA [None]
  - HYPOTHERMIA [None]
  - ANTICONVULSANT DRUG LEVEL INCREASED [None]
